FAERS Safety Report 25826830 (Version 2)
Quarter: 2025Q4

REPORT INFORMATION
  Report Type: Spontaneous
  Country: US (occurrence: US)
  Receive Date: 20250920
  Receipt Date: 20251001
  Transmission Date: 20260118
  Serious: Yes (Other)
  Sender: AUROBINDO
  Company Number: US-AUROBINDO-AUR-APL-2025-047438

PATIENT
  Age: 71 Year
  Sex: Female

DRUGS (6)
  1. CYCLOPHOSPHAMIDE [Suspect]
     Active Substance: CYCLOPHOSPHAMIDE
     Indication: Adult T-cell lymphoma/leukaemia
     Dosage: UNK
     Route: 065
  2. PREDNISONE [Suspect]
     Active Substance: PREDNISONE
     Indication: Adult T-cell lymphoma/leukaemia
     Dosage: UNK
     Route: 065
  3. VINCRISTINE [Suspect]
     Active Substance: VINCRISTINE
     Indication: Adult T-cell lymphoma/leukaemia
     Dosage: UNK
     Route: 065
  4. DOXORUBICIN [Suspect]
     Active Substance: DOXORUBICIN
     Indication: Adult T-cell lymphoma/leukaemia
     Dosage: UNK
     Route: 065
  5. MOGAMULIZUMAB [Concomitant]
     Active Substance: MOGAMULIZUMAB
     Indication: Human T-cell lymphotropic virus type I infection
     Dosage: UNK
     Route: 065
  6. MOGAMULIZUMAB [Concomitant]
     Active Substance: MOGAMULIZUMAB
     Indication: Adult T-cell lymphoma/leukaemia

REACTIONS (1)
  - Drug ineffective [Unknown]
